FAERS Safety Report 6262825-X (Version None)
Quarter: 2009Q3

REPORT INFORMATION
  Report Type: 
  Country: None (occurrence: None)
  Receive Date: 20090708
  Receipt Date: 20090624
  Transmission Date: 20100115
  Serious: Yes (Life-Threatening, Hospitalization)
  Sender: FDA-Public Use
  Company Number: 8047541

PATIENT
  Sex: Female
  Weight: 90.7 kg

DRUGS (13)
  1. CIMZIA [Suspect]
     Indication: CROHN'S DISEASE
     Dosage: 400 MG 1/2W SC
     Route: 058
     Dates: start: 20090427, end: 20090526
  2. PREDNISONE TAB [Concomitant]
  3. DICYCLOMINE [Concomitant]
  4. LYRICA [Concomitant]
  5. PRISMA [Concomitant]
  6. LOVA [Concomitant]
  7. EXFLAME [Concomitant]
  8. MAXALT [Concomitant]
  9. SINGULAIR [Concomitant]
  10. FAMOTIDINE [Concomitant]
  11. OXYCONTIN [Concomitant]
  12. HYDROCODONE [Concomitant]
  13. VALIUM [Concomitant]

REACTIONS (5)
  - ANXIETY [None]
  - ARTHRALGIA [None]
  - MUSCULOSKELETAL STIFFNESS [None]
  - PAIN [None]
  - SUICIDAL IDEATION [None]
